FAERS Safety Report 24063944 (Version 4)
Quarter: 2024Q3

REPORT INFORMATION
  Report Type: Report from Study
  Country: US (occurrence: US)
  Receive Date: 20240709
  Receipt Date: 20240730
  Transmission Date: 20241017
  Serious: Yes (Other)
  Sender: MYLAN
  Company Number: US-MYLANLABS-2024M1062825

PATIENT
  Sex: Female
  Weight: 108.8 kg

DRUGS (2)
  1. ZOLOFT [Suspect]
     Active Substance: SERTRALINE HYDROCHLORIDE
     Indication: Depression
     Dosage: 25 MILLIGRAM, QD (1 TABLET BY MONTH DAILY AT NIGHT TIME)
     Route: 048
     Dates: start: 202406
  2. ZOLOFT [Suspect]
     Active Substance: SERTRALINE HYDROCHLORIDE
     Indication: Anxiety

REACTIONS (8)
  - Suicidal ideation [Unknown]
  - Serotonin syndrome [Unknown]
  - Palpitations [Unknown]
  - Panic attack [Unknown]
  - Dizziness [Unknown]
  - Thinking abnormal [Unknown]
  - Nausea [Unknown]
  - Wrong technique in product usage process [Unknown]
